FAERS Safety Report 8999324 (Version 4)
Quarter: 2013Q1

REPORT INFORMATION
  Report Type: Spontaneous
  Country: JP (occurrence: JP)
  Receive Date: 20130103
  Receipt Date: 20130128
  Transmission Date: 20140127
  Serious: Yes (Other)
  Sender: FDA-Public Use
  Company Number: JP-JNJFOC-20121213930

PATIENT
  Age: 6 Decade
  Sex: Female

DRUGS (6)
  1. TRAMCET [Suspect]
     Indication: PAIN
     Dosage: 1 PER DAY
     Route: 048
     Dates: start: 20121210, end: 20121216
  2. TRAMCET [Suspect]
     Indication: PAIN
     Dosage: 1 PER DAY
     Route: 048
     Dates: start: 20121217, end: 20130111
  3. PRIMPERAN [Suspect]
     Indication: PROPHYLAXIS OF NAUSEA AND VOMITING
     Dosage: 1 PER DAY
     Route: 048
     Dates: start: 20121210, end: 20121217
  4. PRIMPERAN [Suspect]
     Indication: PROPHYLAXIS OF NAUSEA AND VOMITING
     Dosage: 1 PER DAY
     Route: 048
     Dates: start: 20121217, end: 20121228
  5. OPALMON [Suspect]
     Indication: PRODUCT USED FOR UNKNOWN INDICATION
     Dosage: 1 PER DAY
     Route: 048
     Dates: start: 20121204
  6. NAUZELIN [Concomitant]
     Indication: PROPHYLAXIS OF NAUSEA AND VOMITING
     Dosage: 1 PER DAY
     Route: 048
     Dates: start: 20121228

REACTIONS (1)
  - Visual field defect [Recovered/Resolved]
